FAERS Safety Report 12655238 (Version 1)
Quarter: 2016Q3

REPORT INFORMATION
  Report Type: Spontaneous
  Country: DE (occurrence: DE)
  Receive Date: 20160816
  Receipt Date: 20160816
  Transmission Date: 20161109
  Serious: Yes (Other)
  Sender: FDA-Public Use
  Company Number: DE-DRREDDYS-GER/GER/16/0082139

PATIENT
  Age: 41 Year
  Sex: Female

DRUGS (5)
  1. RISPERIDON [Suspect]
     Active Substance: RISPERIDONE
     Indication: SCHIZOPHRENIA
     Route: 048
  2. VENLAFAXINE [Suspect]
     Active Substance: VENLAFAXINE HYDROCHLORIDE
     Indication: SCHIZOPHRENIA
     Route: 048
  3. MIRTAZAPINE. [Suspect]
     Active Substance: MIRTAZAPINE
     Indication: SCHIZOPHRENIA
     Dosage: FROM GESTATIONAL WEEK (GW) 33.5 REGULARLY.
     Route: 048
  4. LORAZEPAM. [Suspect]
     Active Substance: LORAZEPAM
     Indication: SCHIZOPHRENIA
     Dosage: 0.5 [MG/D ]/ FROM GESTATIONAL WEEK (GW) 33+5 0.5MG DAILY, UNTIL GESTATIONAL WEEK (GW) 33+5 IRREGULAR
     Route: 048
  5. SEROQUEL [Suspect]
     Active Substance: QUETIAPINE FUMARATE
     Indication: PSYCHOTIC DISORDER
     Dosage: FROM GESTATIONAL WEEK (GW) 33+5 REGULARLY.
     Route: 048

REACTIONS (2)
  - Exposure during pregnancy [Unknown]
  - Psychotic disorder [Unknown]
